FAERS Safety Report 4689659-1 (Version None)
Quarter: 2005Q2

REPORT INFORMATION
  Report Type: 
  Country: None (occurrence: None)
  Receive Date: 20050607
  Receipt Date: 20040408
  Transmission Date: 20051028
  Serious: Yes (Hospitalization)
  Sender: FDA-Public Use
  Company Number: 2004_000041

PATIENT
  Age: 59 Year
  Sex: Female
  Weight: 64 kg

DRUGS (2)
  1. DEPOCYT [Suspect]
     Indication: MENINGITIS
     Dosage: 50 MG; EVERY OTHER WEEK; INTRATHECAL
     Route: 037
     Dates: start: 20040323, end: 20040406
  2. DEPOCYT [Suspect]
     Indication: NEOPLASM
     Dosage: 50 MG; EVERY OTHER WEEK; INTRATHECAL
     Route: 037
     Dates: start: 20040323, end: 20040406

REACTIONS (1)
  - ARACHNOIDITIS [None]
